FAERS Safety Report 9018783 (Version 3)
Quarter: 2013Q1

REPORT INFORMATION
  Report Type: Report from Study
  Country: US (occurrence: US)
  Receive Date: 20130118
  Receipt Date: 20130315
  Transmission Date: 20140127
  Serious: Yes (Death, Hospitalization, Other)
  Sender: FDA-Public Use
  Company Number: US-BAYER-2013-003740

PATIENT
  Age: 68 Year
  Sex: Male

DRUGS (5)
  1. STIVARGA [Suspect]
     Indication: COLON CANCER
     Dosage: 80 MG, QD
     Route: 048
     Dates: start: 20121207, end: 20121213
  2. STIVARGA [Suspect]
     Indication: COLON CANCER
     Dosage: 120 MG, QD
     Route: 048
     Dates: start: 20121214, end: 20121220
  3. STIVARGA [Suspect]
     Indication: COLON CANCER
     Dosage: 160 MG, QD
     Route: 048
     Dates: start: 20121221
  4. STIVARGA [Suspect]
     Indication: COLON CANCER
     Dosage: 40 MG, 3 TABLETS QD, DAILY
     Route: 048
  5. STIVARGA [Suspect]
     Indication: COLON CANCER
     Dosage: 40 MG, 4 TABLETS QD, DAILY
     Route: 048
     Dates: end: 20130121

REACTIONS (15)
  - Death [Fatal]
  - Urinary retention [Not Recovered/Not Resolved]
  - Sciatica [Recovering/Resolving]
  - Dyspnoea [None]
  - Fatigue [Recovering/Resolving]
  - Decreased appetite [None]
  - Dysphonia [Not Recovered/Not Resolved]
  - Constipation [None]
  - Abnormal faeces [None]
  - Pulmonary embolism [Recovering/Resolving]
  - International normalised ratio increased [Not Recovered/Not Resolved]
  - Hepatic enzyme increased [None]
  - Platelet count decreased [None]
  - Abasia [None]
  - Incoherent [None]
